FAERS Safety Report 7599373-0 (Version None)
Quarter: 2011Q3

REPORT INFORMATION
  Report Type: 
  Country: None (occurrence: None)
  Receive Date: 20110711
  Receipt Date: 20110628
  Transmission Date: 20111222
  Serious: Yes (Other)
  Sender: FDA-Public Use
  Company Number: US-BAYER-2011-057855

PATIENT
  Age: 79 Year
  Sex: Female
  Weight: 57.596 kg

DRUGS (15)
  1. CITRACAL MAXIMUM [Suspect]
     Dosage: 1 DF, TID
     Route: 048
  2. PROBIOTICS [Concomitant]
  3. ASPIRIN [Concomitant]
  4. CENTRUM SILVER [Concomitant]
  5. COUMADIN [Concomitant]
  6. VAGIFEM [Concomitant]
  7. KLOR-CON [Concomitant]
  8. ZOCOR [Concomitant]
  9. LASIX [Concomitant]
  10. CITRUCEL [Concomitant]
  11. VITAMIN D [Concomitant]
  12. MICARDIS [Concomitant]
  13. COREG [Concomitant]
  14. NEXIUM [Concomitant]
  15. FISH OIL [Concomitant]

REACTIONS (3)
  - FOREIGN BODY [None]
  - DYSPNOEA [None]
  - CHOKING [None]
